FAERS Safety Report 4752279-4 (Version None)
Quarter: 2005Q3

REPORT INFORMATION
  Report Type: 
  Country: None (occurrence: None)
  Receive Date: 20050825
  Receipt Date: 20050815
  Transmission Date: 20060218
  Serious: Yes (Other)
  Sender: FDA-Public Use
  Company Number: 2005105144

PATIENT
  Age: 26 Year
  Sex: Male

DRUGS (3)
  1. NICODERM [Suspect]
     Route: 062
     Dates: start: 20050701
  2. MOCLOBEMIDE [Concomitant]
  3. PANTOTHENIC ACID [Concomitant]

REACTIONS (3)
  - HEART RATE ABNORMAL [None]
  - LOSS OF CONSCIOUSNESS [None]
  - MIGRAINE [None]
